FAERS Safety Report 10181676 (Version 1)
Quarter: 2014Q2

REPORT INFORMATION
  Report Type: Spontaneous
  Country: GB (occurrence: GB)
  Receive Date: 20140519
  Receipt Date: 20140519
  Transmission Date: 20141212
  Serious: Yes (Other)
  Sender: FDA-Public Use
  Company Number: GB-WATSON-2014-09969

PATIENT
  Age: 30 Year
  Sex: Female
  Weight: 88 kg

DRUGS (2)
  1. METRONIDAZOLE (UNKNOWN) [Suspect]
     Indication: TOOTH INFECTION
     Dosage: 400 MG, UNKNOWN
     Route: 048
     Dates: start: 20140416, end: 20140420
  2. CODEINE [Concomitant]
     Indication: PRODUCT USED FOR UNKNOWN INDICATION
     Dosage: UNK
     Route: 065

REACTIONS (2)
  - Nausea [Recovered/Resolved]
  - Sensation of foreign body [Recovering/Resolving]
